FAERS Safety Report 22101761 (Version 1)
Quarter: 2023Q1

REPORT INFORMATION
  Report Type: Report from Study
  Country: US (occurrence: US)
  Receive Date: 20230316
  Receipt Date: 20230316
  Transmission Date: 20230418
  Serious: Yes (Other)
  Sender: FDA-Public Use
  Company Number: US-ABBVIE-4327017

PATIENT
  Age: 70 Year
  Sex: Male
  Weight: 92.98 kg

DRUGS (2)
  1. IMBRUVICA [Suspect]
     Active Substance: IBRUTINIB
     Indication: Chronic lymphocytic leukaemia recurrent
     Dosage: 420 MILLIGRAM
     Route: 048
     Dates: start: 20190723
  2. FISH OIL [Concomitant]
     Active Substance: FISH OIL
     Indication: Product used for unknown indication

REACTIONS (4)
  - Scar [Recovering/Resolving]
  - Prostate cancer [Recovering/Resolving]
  - Constipation [Recovered/Resolved]
  - Urinary incontinence [Recovering/Resolving]

NARRATIVE: CASE EVENT DATE: 20210101
